FAERS Safety Report 10093143 (Version 1)
Quarter: 2014Q2

REPORT INFORMATION
  Report Type: Spontaneous
  Country: US (occurrence: US)
  Receive Date: 20140421
  Receipt Date: 20140421
  Transmission Date: 20141212
  Serious: No
  Sender: FDA-Public Use
  Company Number: US-SANOFI-AVENTIS-2013SA053676

PATIENT
  Age: 66 Year
  Sex: Female
  Weight: 78 kg

DRUGS (20)
  1. ALLEGRA [Suspect]
     Indication: SEASONAL ALLERGY
     Route: 048
     Dates: end: 20130522
  2. PREDNISOLONE ACETATE [Concomitant]
  3. ALL OTHER THERAPEUTIC PRODUCTS [Concomitant]
  4. WARFARIN [Concomitant]
     Route: 048
  5. NEURONTIN [Concomitant]
     Dosage: FREQUENCY- AS NEEDED
     Route: 048
  6. T-CAPS [Concomitant]
  7. COZAAR [Concomitant]
     Route: 048
  8. BIOFLAVONOIDS [Concomitant]
     Route: 048
  9. SYNTHROID [Concomitant]
     Dosage: DOSE - 1 TABLET OF 150 MCG, 175 MCG TABLET 2 DAYS OF WEEK
     Route: 048
  10. COUMADIN [Concomitant]
     Dosage: DOSE AND FREQUENCY-1.5 MG FOR 5 DAYS A WEEK
     Route: 048
  11. ESIDRIX [Concomitant]
     Dosage: DOSE AND FREQUENCY-TAKE 1 AND HALF TO TWO TABLETS DAILY
     Route: 048
  12. TENORMIN [Concomitant]
     Route: 048
  13. CLONIDINE [Concomitant]
     Dosage: DOSE-TAKE HALF TABLET, IN NOON,MID AFTERNOON AND BEDTIME
     Route: 048
  14. AZELASTINE HYDROCHLORIDE [Concomitant]
     Dosage: DOSE- 1-2 SPRAY IN THE NOSE AS NEEDED
  15. DIGOXIN [Concomitant]
     Route: 048
  16. ASPIRIN [Concomitant]
     Route: 048
  17. CLARITIN [Concomitant]
     Dosage: FREQUENCY- ONCE DAILY AS NEEDED
     Route: 048
  18. MAGNESIUM [Concomitant]
     Route: 048
  19. VITAMIN PREPARATION COMPOUND [Concomitant]
     Dosage: DOSE-2.8-25-2 MG
     Route: 048
  20. VITAMIN D [Concomitant]
     Dosage: DOSE:2000 UNIT(S)
     Route: 048

REACTIONS (1)
  - Nervousness [Recovered/Resolved]
